FAERS Safety Report 7985480-7 (Version None)
Quarter: 2011Q4

REPORT INFORMATION
  Report Type: 
  Country: None (occurrence: None)
  Receive Date: 20111216
  Receipt Date: 20110105
  Transmission Date: 20120403
  Serious: Yes (Other)
  Sender: FDA-Public Use
  Company Number: US-ABBOTT-11P-163-0695588-00

PATIENT

DRUGS (2)
  1. NIMBEX [Suspect]
     Route: 050
  2. NIMBEX [Suspect]
     Indication: ENDOTRACHEAL INTUBATION

REACTIONS (1)
  - DRUG INEFFECTIVE [None]
